FAERS Safety Report 8548589-5 (Version None)
Quarter: 2012Q3

REPORT INFORMATION
  Report Type: 
  Country: None (occurrence: None)
  Receive Date: 20120717
  Receipt Date: 20120705
  Transmission Date: 20120928
  Serious: Yes (Other)
  Sender: FDA-Public Use
  Company Number: 2012P1048240

PATIENT
  Age: 38 Year
  Sex: Female

DRUGS (5)
  1. LEUCOVORIN CALCIUM [Concomitant]
  2. DARAPRIM [Suspect]
     Indication: TOXOPLASMOSIS
     Dosage: 25 MG; QD; PO
     Route: 048
     Dates: start: 20120425, end: 20120515
  3. VITAMIN B12 + FOLIC ACID [Concomitant]
  4. SULPHADIAZINE [Concomitant]
  5. SPIRAMYCIN [Concomitant]

REACTIONS (5)
  - AMINO ACID LEVEL INCREASED [None]
  - TRANSAMINASES INCREASED [None]
  - CONDITION AGGRAVATED [None]
  - MATERNAL EXPOSURE DURING PREGNANCY [None]
  - PHENYLKETONURIA [None]
